FAERS Safety Report 21860132 (Version 3)
Quarter: 2023Q1

REPORT INFORMATION
  Report Type: Report from Study
  Country: US (occurrence: US)
  Receive Date: 20230113
  Receipt Date: 20230323
  Transmission Date: 20230417
  Serious: Yes (Other)
  Sender: FDA-Public Use
  Company Number: US-SHIRE-US201827123

PATIENT
  Sex: Female
  Weight: 50.794 kg

DRUGS (29)
  1. HUMAN IMMUNOGLOBULIN G\HYALURONIDASE RECOMBINANT HUMAN [Suspect]
     Active Substance: HUMAN IMMUNOGLOBULIN G\HYALURONIDASE RECOMBINANT HUMAN
     Indication: Primary immunodeficiency syndrome
     Dosage: 25 GRAM, Q4WEEKS
     Route: 065
  2. HUMAN IMMUNOGLOBULIN G\HYALURONIDASE RECOMBINANT HUMAN [Suspect]
     Active Substance: HUMAN IMMUNOGLOBULIN G\HYALURONIDASE RECOMBINANT HUMAN
     Indication: Selective IgG subclass deficiency
     Dosage: 25 GRAM, Q4WEEKS
     Route: 058
     Dates: start: 20220304
  3. HUMAN IMMUNOGLOBULIN G\HYALURONIDASE RECOMBINANT HUMAN [Suspect]
     Active Substance: HUMAN IMMUNOGLOBULIN G\HYALURONIDASE RECOMBINANT HUMAN
     Indication: Oesophageal candidiasis
  4. HUMAN IMMUNOGLOBULIN G\HYALURONIDASE RECOMBINANT HUMAN [Suspect]
     Active Substance: HUMAN IMMUNOGLOBULIN G\HYALURONIDASE RECOMBINANT HUMAN
     Indication: Hypogammaglobulinaemia
  5. DIPHENHYDRAMINE [Concomitant]
     Active Substance: DIPHENHYDRAMINE
  6. LYSINE [Concomitant]
     Active Substance: LYSINE
  7. CALCIUM VITAMIN D3 [Concomitant]
  8. EPINEPHRINE [Concomitant]
     Active Substance: EPINEPHRINE
  9. FLUTICASONE PROPIONATE [Concomitant]
     Active Substance: FLUTICASONE PROPIONATE
  10. AMBIEN CR [Concomitant]
     Active Substance: ZOLPIDEM TARTRATE
  11. BEVESPI AEROSPHERE [Concomitant]
     Active Substance: FORMOTEROL FUMARATE\GLYCOPYRROLATE
  12. LEVOCETIRIZINE DIHYDROCHLORIDE [Concomitant]
     Active Substance: LEVOCETIRIZINE DIHYDROCHLORIDE
  13. PLAQUENIL [Concomitant]
     Active Substance: HYDROXYCHLOROQUINE SULFATE
  14. ACETAMINOPHEN [Concomitant]
     Active Substance: ACETAMINOPHEN
  15. BISACODYL [Concomitant]
     Active Substance: BISACODYL
  16. NADOLOL [Concomitant]
     Active Substance: NADOLOL
  17. SODIUM CHLORIDE [Concomitant]
     Active Substance: SODIUM CHLORIDE
  18. ADDERALL [Concomitant]
     Active Substance: AMPHETAMINE ASPARTATE\AMPHETAMINE SULFATE\DEXTROAMPHETAMINE SACCHARATE\DEXTROAMPHETAMINE SULFATE
  19. LORATADINE [Concomitant]
     Active Substance: LORATADINE
  20. AZELASTINE HYDROCHLORIDE [Concomitant]
     Active Substance: AZELASTINE HYDROCHLORIDE
  21. CLARITIN [Concomitant]
     Active Substance: LORATADINE
  22. CLOTRIMAZOLE [Concomitant]
     Active Substance: CLOTRIMAZOLE
  23. ALBUTEROL SULFATE [Concomitant]
     Active Substance: ALBUTEROL SULFATE
  24. POTASSIUM GLUCONATE [Concomitant]
     Active Substance: POTASSIUM GLUCONATE
  25. CELECOXIB [Concomitant]
     Active Substance: CELECOXIB
  26. PROGESTERONE [Concomitant]
     Active Substance: PROGESTERONE
  27. LIDOCAINE [Concomitant]
     Active Substance: LIDOCAINE
  28. VITAMIN B COMPLEX [Concomitant]
     Active Substance: CYANOCOBALAMIN\DEXPANTHENOL\NIACINAMIDE\PYRIDOXINE HYDROCHLORIDE\RIBOFLAVIN 5^-PHOSPHATE SODIUM\THIA
  29. CALCIUM [Concomitant]
     Active Substance: CALCIUM

REACTIONS (13)
  - Loss of consciousness [Recovering/Resolving]
  - Fungal infection [Recovered/Resolved]
  - Feeling cold [Recovered/Resolved]
  - Headache [Unknown]
  - Anxiety [Recovering/Resolving]
  - Muscle twitching [Recovering/Resolving]
  - Heart rate increased [Recovering/Resolving]
  - Muscle spasms [Recovering/Resolving]
  - Chest pain [Recovering/Resolving]
  - Blood pressure increased [Recovering/Resolving]
  - Blood pressure decreased [Recovered/Resolved]
  - Dizziness [Recovering/Resolving]
  - Incorrect drug administration rate [Unknown]
